FAERS Safety Report 14688023 (Version 8)
Quarter: 2018Q2

REPORT INFORMATION
  Report Type: Spontaneous
  Country: US (occurrence: US)
  Receive Date: 20180328
  Receipt Date: 20180626
  Transmission Date: 20180711
  Serious: Yes (Other)
  Sender: FDA-Public Use
  Company Number: US-PFIZER INC-2018124457

PATIENT
  Age: 63 Year
  Sex: Male
  Weight: 124.7 kg

DRUGS (18)
  1. NEXIUM [Concomitant]
     Active Substance: ESOMEPRAZOLE MAGNESIUM
     Dosage: UNK
  2. ZOFRAN [Concomitant]
     Active Substance: ONDANSETRON HYDROCHLORIDE
     Dosage: UNK
  3. MELOXICAM. [Concomitant]
     Active Substance: MELOXICAM
     Dosage: UNK
  4. BABY ASPIRIN [Concomitant]
     Active Substance: ASPIRIN
     Dosage: UNK
  5. TRIAMTERENE AND HYDROCHLOROTHIAZIDE [Suspect]
     Active Substance: HYDROCHLOROTHIAZIDE\TRIAMTERENE
     Dosage: UNK
  6. NYSTATIN POWDER [Concomitant]
     Active Substance: NYSTATIN
     Dosage: UNK
  7. BACTRIM [Concomitant]
     Active Substance: SULFAMETHOXAZOLE\TRIMETHOPRIM
     Dosage: UNK
  8. METOPROLOL. [Concomitant]
     Active Substance: METOPROLOL
     Dosage: UNK
  9. PROMETHAZINE [Concomitant]
     Active Substance: PROMETHAZINE\PROMETHAZINE HYDROCHLORIDE
     Dosage: UNK
  10. ALBUTEROL. [Concomitant]
     Active Substance: ALBUTEROL
     Dosage: UNK
  11. AMLODIPINE [Concomitant]
     Active Substance: AMLODIPINE BESYLATE
     Dosage: UNK
  12. BACLOFEN. [Concomitant]
     Active Substance: BACLOFEN
     Dosage: UNK
  13. SUTENT [Suspect]
     Active Substance: SUNITINIB MALATE
     Indication: METASTATIC RENAL CELL CARCINOMA
     Dosage: 25 MG, CYCLIC (28 DAYS ON/14 DAYS OFF)
     Dates: start: 20180223
  14. CLEOCIN [Concomitant]
     Active Substance: CLINDAMYCIN PHOSPHATE
     Dosage: UNK
  15. PERCOCET [Concomitant]
     Active Substance: ACETAMINOPHEN\OXYCODONE HYDROCHLORIDE
     Dosage: UNK
  16. LIPITOR [Concomitant]
     Active Substance: ATORVASTATIN CALCIUM
     Dosage: UNK
  17. TERAZOSIN [Concomitant]
     Active Substance: TERAZOSIN\TERAZOSIN HYDROCHLORIDE
     Dosage: UNK
  18. ANORO ELLIPTA [Concomitant]
     Active Substance: UMECLIDINIUM BROMIDE\VILANTEROL TRIFENATATE
     Dosage: UNK

REACTIONS (54)
  - Blood pressure increased [Not Recovered/Not Resolved]
  - Dysuria [Unknown]
  - Fluid retention [Unknown]
  - Chromaturia [Unknown]
  - Blood glucose abnormal [Unknown]
  - Abscess drainage [Unknown]
  - Haemorrhage [Not Recovered/Not Resolved]
  - Tinnitus [Recovering/Resolving]
  - Lacrimation increased [Recovering/Resolving]
  - Oral pain [Recovered/Resolved]
  - Abnormal dreams [Unknown]
  - Oral pain [Unknown]
  - Glossodynia [Not Recovered/Not Resolved]
  - Peripheral swelling [Recovering/Resolving]
  - Joint swelling [Unknown]
  - Dry skin [Unknown]
  - Platelet count decreased [Unknown]
  - Nail discolouration [Unknown]
  - Diarrhoea [Unknown]
  - Dizziness [Unknown]
  - Constipation [Unknown]
  - Headache [Recovered/Resolved]
  - Contusion [Not Recovered/Not Resolved]
  - Anaemia [Unknown]
  - Weight increased [Unknown]
  - Dyspepsia [Recovered/Resolved]
  - Productive cough [Unknown]
  - Renal pain [Unknown]
  - Cough [Unknown]
  - Ejection fraction decreased [Unknown]
  - Mitral valve incompetence [Unknown]
  - Gingival pain [Not Recovered/Not Resolved]
  - Rash [Not Recovered/Not Resolved]
  - Erythema of eyelid [Unknown]
  - Blood disorder [Not Recovered/Not Resolved]
  - Nausea [Recovered/Resolved]
  - Hypersomnia [Unknown]
  - Yellow skin [Unknown]
  - Decreased appetite [Unknown]
  - Arthralgia [Unknown]
  - Hyperhidrosis [Unknown]
  - Fatigue [Unknown]
  - Nasal disorder [Unknown]
  - Muscle spasms [Not Recovered/Not Resolved]
  - Vision blurred [Not Recovered/Not Resolved]
  - Chest pain [Unknown]
  - Swelling [Not Recovered/Not Resolved]
  - Dysgeusia [Recovering/Resolving]
  - Flatulence [Unknown]
  - Toothache [Not Recovered/Not Resolved]
  - Ageusia [Recovered/Resolved]
  - Fungal infection [Not Recovered/Not Resolved]
  - Haematospermia [Unknown]
  - Hot flush [Unknown]

NARRATIVE: CASE EVENT DATE: 20180302
